FAERS Safety Report 15673854 (Version 5)
Quarter: 2019Q4

REPORT INFORMATION
  Report Type: Spontaneous
  Country: US (occurrence: US)
  Receive Date: 20181129
  Receipt Date: 20191223
  Transmission Date: 20200122
  Serious: Yes (Other)
  Sender: FDA-Public Use
  Company Number: US-PFIZER INC-2015345796

PATIENT
  Age: 81 Year
  Sex: Female

DRUGS (14)
  1. MAG OXIDE [Concomitant]
     Active Substance: MAGNESIUM OXIDE
     Dosage: 400 MG, UNK
  2. XARELTO [Concomitant]
     Active Substance: RIVAROXABAN
     Indication: BLOOD CHOLESTEROL ABNORMAL
  3. XARELTO [Concomitant]
     Active Substance: RIVAROXABAN
     Indication: PACEMAKER SYNDROME
     Dosage: 20 MG, UNK
  4. XARELTO [Concomitant]
     Active Substance: RIVAROXABAN
     Indication: ATRIAL FIBRILLATION
  5. TIKOSYN [Suspect]
     Active Substance: DOFETILIDE
     Indication: ATRIAL FIBRILLATION
     Dosage: 250 ?G, 2X/DAY
     Route: 048
     Dates: start: 20120419
  6. ATORVASTATIN [Concomitant]
     Active Substance: ATORVASTATIN
     Indication: PACEMAKER SYNDROME
     Dosage: UNK
  7. METOPROLOL. [Concomitant]
     Active Substance: METOPROLOL
     Indication: BLOOD CHOLESTEROL ABNORMAL
  8. METOPROLOL SUCCINATE. [Concomitant]
     Active Substance: METOPROLOL SUCCINATE
     Dosage: 50 MG, UNK
  9. LIPITOR [Concomitant]
     Active Substance: ATORVASTATIN CALCIUM
     Dosage: 40 MG, UNK
  10. METOPROLOL. [Concomitant]
     Active Substance: METOPROLOL
     Indication: ATRIAL FIBRILLATION
  11. METOPROLOL. [Concomitant]
     Active Substance: METOPROLOL
     Indication: PACEMAKER SYNDROME
     Dosage: UNK
  12. TIKOSYN [Suspect]
     Active Substance: DOFETILIDE
     Indication: PACEMAKER SYNDROME
     Dosage: 250 ?G, 2X/DAY
     Route: 048
  13. ATORVASTATIN [Concomitant]
     Active Substance: ATORVASTATIN
     Indication: ATRIAL FIBRILLATION
  14. ATORVASTATIN [Concomitant]
     Active Substance: ATORVASTATIN
     Indication: BLOOD CHOLESTEROL ABNORMAL

REACTIONS (2)
  - Dementia [Unknown]
  - Dementia Alzheimer^s type [Not Recovered/Not Resolved]
